FAERS Safety Report 12946555 (Version 1)
Quarter: 2016Q4

REPORT INFORMATION
  Report Type: Spontaneous
  Country: US (occurrence: US)
  Receive Date: 20161116
  Receipt Date: 20161116
  Transmission Date: 20170207
  Serious: Yes (Death, Other)
  Sender: FDA-Public Use
  Company Number: PHHY2016US155354

PATIENT
  Sex: Male

DRUGS (1)
  1. LDK378 [Suspect]
     Active Substance: CERITINIB
     Indication: NON-SMALL CELL LUNG CANCER
     Route: 065

REACTIONS (8)
  - Malignant neoplasm progression [Unknown]
  - Metastases to liver [Unknown]
  - Metastases to adrenals [Unknown]
  - Metastases to abdominal cavity [Unknown]
  - Drug ineffective [Unknown]
  - Product use issue [Unknown]
  - Non-small cell lung cancer [Unknown]
  - Respiratory failure [Fatal]
